FAERS Safety Report 9283922 (Version 2)
Quarter: 2016Q1

REPORT INFORMATION
  Report Type: Spontaneous
  Country: US (occurrence: US)
  Receive Date: 20130510
  Receipt Date: 20160110
  Transmission Date: 20160526
  Serious: No
  Sender: FDA-Public Use
  Company Number: US-COVIDIEN/TYCO HEALTHCARE/MALLINCKRODT-T201300846

PATIENT
  Age: 71 Year
  Sex: Female
  Weight: 45.35 kg

DRUGS (4)
  1. FENTANYL TRANSDERMAL SYSTEM [Suspect]
     Active Substance: FENTANYL
     Indication: PAIN
     Dosage: 100 MCG/HR; Q 48 HR
     Route: 062
     Dates: start: 20130129
  2. IMOVANE [Concomitant]
     Active Substance: ZOPICLONE
     Indication: INSOMNIA
     Dosage: UNK
  3. FENTANYL TRANSDERMAL SYSTEM [Suspect]
     Active Substance: FENTANYL
     Indication: PAIN
     Dosage: 100 MC/HR, Q 48 HRS
     Route: 062
     Dates: start: 201212
  4. DILAUDID [Concomitant]
     Active Substance: HYDROMORPHONE HYDROCHLORIDE
     Indication: BREAKTHROUGH PAIN
     Dosage: 4 MG, 6 PER DAY

REACTIONS (11)
  - Drug withdrawal syndrome [Not Recovered/Not Resolved]
  - Application site scab [Not Recovered/Not Resolved]
  - Diarrhoea [None]
  - Tremor [None]
  - Product substitution issue [None]
  - Muscle spasms [Not Recovered/Not Resolved]
  - Application site erythema [Not Recovered/Not Resolved]
  - Application site irritation [Not Recovered/Not Resolved]
  - Weight decreased [Not Recovered/Not Resolved]
  - Drug ineffective [Not Recovered/Not Resolved]
  - Device leakage [None]

NARRATIVE: CASE EVENT DATE: 201301
